FAERS Safety Report 15902876 (Version 1)
Quarter: 2019Q1

REPORT INFORMATION
  Report Type: Spontaneous
  Country: GB (occurrence: GB)
  Receive Date: 20190202
  Receipt Date: 20190202
  Transmission Date: 20190417
  Serious: Yes (Other)
  Sender: FDA-Public Use
  Company Number: GB-ACCORD-104235

PATIENT
  Age: 30 Year
  Sex: Female
  Weight: 90 kg

DRUGS (8)
  1. ALVERINE [Concomitant]
     Active Substance: ALVERINE
  2. FULTIUM-D3 [Concomitant]
     Active Substance: CHOLECALCIFEROL
  3. VENLAFAXINE/VENLAFAXINE HYDROCHLORIDE [Concomitant]
  4. NAPROXEN. [Concomitant]
     Active Substance: NAPROXEN
  5. QUETIAPINE. [Suspect]
     Active Substance: QUETIAPINE
     Indication: DEPRESSION SUICIDAL
     Route: 048
  6. PREGABALIN. [Concomitant]
     Active Substance: PREGABALIN
  7. IRON [Concomitant]
     Active Substance: IRON
  8. OMEPRAZOLE. [Concomitant]
     Active Substance: OMEPRAZOLE

REACTIONS (10)
  - Inadequate analgesia [Unknown]
  - Paraesthesia [Unknown]
  - Tachycardia [Unknown]
  - Fatigue [Unknown]
  - Dry mouth [Unknown]
  - Dry eye [Unknown]
  - Alopecia [Unknown]
  - Tremor [Unknown]
  - Abnormal weight gain [Unknown]
  - Dizziness [Not Recovered/Not Resolved]

NARRATIVE: CASE EVENT DATE: 20180419
